FAERS Safety Report 10104436 (Version 3)
Quarter: 2014Q3

REPORT INFORMATION
  Report Type: Spontaneous
  Country: US (occurrence: US)
  Receive Date: 20140424
  Receipt Date: 20140721
  Transmission Date: 20150326
  Serious: Yes (Other)
  Sender: FDA-Public Use
  Company Number: US-PFIZER INC-2014111368

PATIENT
  Age: 73 Year
  Sex: Male

DRUGS (1)
  1. VIAGRA [Suspect]
     Active Substance: SILDENAFIL CITRATE
     Dosage: 100, 1 AS NEEDED
     Route: 048

REACTIONS (3)
  - Blood glucose increased [Unknown]
  - Hypertension [Unknown]
  - Prostate cancer [Recovered/Resolved]
